FAERS Safety Report 9299860 (Version 1)
Quarter: 2013Q1

REPORT INFORMATION
  Report Type: Spontaneous
  Country: US (occurrence: None)
  Receive Date: 20121227
  Receipt Date: 20121227
  Transmission Date: 20140127
  Serious: Yes (Other)
  Sender: FDA-Public Use
  Company Number: PHEH2012US020519

PATIENT
  Age: 62 Year
  Sex: Male

DRUGS (4)
  1. AFINITOR [Suspect]
     Indication: RENAL CANCER
     Route: 048
     Dates: start: 20120801
  2. LASIX (FUROSEMIDE) [Concomitant]
  3. NIASPAN (NICOTINIC ACID) [Concomitant]
  4. METOPROLOL (METOPROLOL) [Concomitant]

REACTIONS (5)
  - Cardiac failure congestive [None]
  - Fluid retention [None]
  - Rash [None]
  - Fatigue [None]
  - Cough [None]
